FAERS Safety Report 7053283-6 (Version None)
Quarter: 2010Q4

REPORT INFORMATION
  Report Type: 
  Country: None (occurrence: None)
  Receive Date: 20101020
  Receipt Date: 20101006
  Transmission Date: 20110411
  Serious: Yes (Other)
  Sender: FDA-Public Use
  Company Number: PHEH2006US10883

PATIENT
  Sex: Male

DRUGS (12)
  1. ZOMETA [Suspect]
  2. THALIDOMIDE [Concomitant]
  3. NORVASC [Concomitant]
     Dosage: 10 MG, UNK
  4. HYDROCODONE BITARTRATE AND ACETAMINOPHEN [Concomitant]
  5. CEPHALEXIN [Concomitant]
     Dosage: 500 MG, UNK
  6. ACETAMINOPHEN AND TRAMADOL HCL [Concomitant]
  7. LORTAB [Concomitant]
     Dosage: 5/500
  8. HYDROCHLOROTHIAZIDE [Concomitant]
  9. BUTALBITAL ACETAMINOPHEN AND CAFFEINE [Concomitant]
  10. AMOXICILLIN AND CLAVULANATE POTASSIUM [Concomitant]
  11. CIPROFLOXACIN [Concomitant]
  12. POTASSIUM CHLORIDE [Concomitant]

REACTIONS (27)
  - AMPUTATION [None]
  - ANAEMIA [None]
  - ANXIETY [None]
  - ATELECTASIS [None]
  - CRANIOTOMY [None]
  - DEBRIDEMENT [None]
  - DYSPNOEA [None]
  - EXOSTOSIS [None]
  - INJURY [None]
  - LYMPHADENOPATHY [None]
  - LYMPHADENOPATHY MEDIASTINAL [None]
  - METASTASES TO CENTRAL NERVOUS SYSTEM [None]
  - METASTASES TO LUNG [None]
  - NEPHRECTOMY [None]
  - ORAL INFECTION [None]
  - ORAL NEOPLASM [None]
  - OSTEITIS [None]
  - OSTEONECROSIS OF JAW [None]
  - PAIN [None]
  - PATHOLOGICAL FRACTURE [None]
  - PLEURAL EFFUSION [None]
  - PNEUMONIA [None]
  - PURULENT DISCHARGE [None]
  - PYREXIA [None]
  - RESPIRATORY FAILURE [None]
  - SWELLING [None]
  - TOOTH EXTRACTION [None]
